FAERS Safety Report 5870541-9 (Version None)
Quarter: 2008Q3

REPORT INFORMATION
  Report Type: 
  Country: None (occurrence: None)
  Receive Date: 20080904
  Receipt Date: 20080828
  Transmission Date: 20090109
  Serious: Yes (Hospitalization)
  Sender: FDA-Public Use
  Company Number: AU-AMGEN-US283007

PATIENT
  Sex: Female

DRUGS (13)
  1. PEGFILGRASTIM [Suspect]
     Indication: CHEMOTHERAPY
     Route: 030
     Dates: start: 20080523
  2. DOCETAXEL [Suspect]
     Indication: CHEMOTHERAPY
     Route: 042
     Dates: start: 20080524, end: 20080524
  3. ZOMETA [Concomitant]
     Route: 042
     Dates: start: 20080524, end: 20080524
  4. ENOXAPARIN SODIUM [Concomitant]
     Route: 058
     Dates: start: 20080501
  5. OXYCODONE HCL [Concomitant]
     Route: 065
     Dates: start: 20080501
  6. THYROXINE [Concomitant]
     Route: 065
  7. PANTOPRAZOLE [Concomitant]
     Route: 048
     Dates: start: 20080501
  8. METOCLOPRAMIDE [Concomitant]
     Route: 048
     Dates: start: 20080501
  9. COLOXYL WITH SENNA [Concomitant]
     Route: 048
     Dates: start: 20080501
  10. OXYCONTIN [Concomitant]
     Route: 048
     Dates: start: 20080501
  11. OXYCONTIN [Concomitant]
     Route: 048
     Dates: start: 20080501
  12. VITAMIN B COMPLEX CAP [Concomitant]
     Route: 048
  13. ACETAMINOPHEN [Concomitant]
     Route: 048

REACTIONS (3)
  - DYSPNOEA [None]
  - LETHARGY [None]
  - PAIN [None]
